FAERS Safety Report 9336826 (Version 3)
Quarter: 2013Q3

REPORT INFORMATION
  Report Type: Spontaneous
  Country: US (occurrence: US)
  Receive Date: 20130607
  Receipt Date: 20130927
  Transmission Date: 20140515
  Serious: Yes (Death, Other)
  Sender: FDA-Public Use
  Company Number: US-INCYTE CORPORATION-2013IN000793

PATIENT
  Age: 72 Year
  Sex: Male
  Weight: 67.35 kg

DRUGS (13)
  1. JAKAFI [Suspect]
     Indication: MYELOFIBROSIS
     Dosage: 10 MG, BID
     Route: 048
     Dates: start: 20121017, end: 20121117
  2. JAKAFI [Suspect]
     Indication: MYELOPROLIFERATIVE DISORDER
     Dosage: 10 MG, BID
     Route: 048
     Dates: start: 20121118, end: 20130604
  3. CLONAZEPAM [Concomitant]
  4. CITALOPRAM [Concomitant]
  5. ACYCLOVIR [Concomitant]
  6. DIGOXIN [Concomitant]
  7. METOPROLOL [Concomitant]
  8. FISH OIL [Concomitant]
  9. VITAMIN D [Concomitant]
  10. ASPIRIN [Concomitant]
     Dosage: 81 MG, UNK
  11. TYLENOL [Concomitant]
  12. CHLOROPHYLL [Concomitant]
  13. ARANESP [Concomitant]
     Dosage: EVERY THREE WEEKS

REACTIONS (8)
  - Death [Fatal]
  - Blast cells present [Unknown]
  - Haemoglobin decreased [Not Recovered/Not Resolved]
  - Platelet count decreased [Not Recovered/Not Resolved]
  - White blood cell count increased [Not Recovered/Not Resolved]
  - Neutrophil count increased [Not Recovered/Not Resolved]
  - Pyrexia [Recovering/Resolving]
  - Haematocrit decreased [Not Recovered/Not Resolved]
